FAERS Safety Report 8717731 (Version 3)
Quarter: 2012Q4

REPORT INFORMATION
  Report Type: Report from Study
  Country: FR (occurrence: FR)
  Receive Date: 20120810
  Receipt Date: 20121127
  Transmission Date: 20130627
  Serious: Yes (Death, Hospitalization, Disabling, Other)
  Sender: FDA-Public Use
  Company Number: FR-PFIZER INC-2012109714

PATIENT
  Age: 74 Year
  Sex: Male
  Weight: 85 kg

DRUGS (7)
  1. TORISEL [Suspect]
     Indication: GLIOBLASTOMA
     Dosage: 25 mg, weekly
     Route: 042
     Dates: start: 20120412, end: 20120419
  2. TORISEL [Suspect]
     Dosage: 25 mg, weekly
     Dates: end: 20120510
  3. URBANYL [Concomitant]
     Indication: ANXIETY
     Dosage: 5 mg, 1x/day
     Route: 048
     Dates: start: 20120320, end: 20120502
  4. KEPPRA [Concomitant]
     Indication: EPILEPSY
     Dosage: 1000 mg, 2x/day
     Route: 048
     Dates: start: 20120320
  5. SOLUPRED [Concomitant]
     Indication: HEADACHE
     Dosage: 80 mg, 1x/day
     Route: 048
     Dates: start: 20120320
  6. PARIET [Concomitant]
     Indication: GASTRITIS PROPHYLAXIS
     Dosage: 10 mg, 1x/day
     Route: 048
     Dates: start: 20120320
  7. SEROPLEX [Concomitant]
     Indication: DEPRESSION
     Dosage: 10 mg, 1x/day
     Route: 048
     Dates: start: 20120418

REACTIONS (4)
  - Disease progression [Fatal]
  - Glioblastoma [Fatal]
  - Depressed level of consciousness [Recovered/Resolved]
  - Hydrocephalus [Recovered/Resolved]
